FAERS Safety Report 4501387-1 (Version None)
Quarter: 2004Q4

REPORT INFORMATION
  Report Type: 
  Country: None (occurrence: None)
  Receive Date: 20041110
  Receipt Date: 20041021
  Transmission Date: 20050328
  Serious: Yes (Life-Threatening, Hospitalization)
  Sender: FDA-Public Use
  Company Number: 20041000457

PATIENT
  Age: 58 Year
  Sex: Male
  Weight: 70.3075 kg

DRUGS (4)
  1. FORANE [Suspect]
     Indication: ANAESTHESIA
     Dosage: 2.5 % INH
     Dates: start: 20041012, end: 20041012
  2. NITROUS OXIDE W/ OXYGEN [Concomitant]
  3. DIPRIVAN [Concomitant]
  4. FENTANYL [Concomitant]

REACTIONS (4)
  - BRAIN DAMAGE [None]
  - BRAIN STEM SYNDROME [None]
  - HYPOPERFUSION [None]
  - PROCEDURAL COMPLICATION [None]
